FAERS Safety Report 7811785-6 (Version None)
Quarter: 2011Q4

REPORT INFORMATION
  Report Type: 
  Country: None (occurrence: None)
  Receive Date: 20111011
  Receipt Date: 20110711
  Transmission Date: 20120403
  Serious: Yes (Hospitalization)
  Sender: FDA-Public Use
  Company Number: DL2011-0551

PATIENT
  Age: 30 Year
  Sex: Female

DRUGS (3)
  1. DOXYCYCLINE [Concomitant]
  2. MIFEPRISTONE (MIFEPREX) [Suspect]
     Indication: ABORTION INDUCED
     Dosage: 200 MG, ORAL
     Route: 048
     Dates: start: 20110418
  3. MISOPROSTOL [Suspect]
     Dosage: 800 MCG, BUCCAL
     Route: 002
     Dates: start: 20110419

REACTIONS (1)
  - ECTOPIC PREGNANCY [None]
